FAERS Safety Report 6603434-X (Version None)
Quarter: 2010Q1

REPORT INFORMATION
  Report Type: 
  Country: None (occurrence: None)
  Receive Date: 20100226
  Receipt Date: 20090519
  Transmission Date: 20100710
  Serious: No
  Sender: FDA-Public Use
  Company Number: A0785042A

PATIENT
  Sex: Male

DRUGS (1)
  1. VALTREX [Suspect]
     Indication: GENITAL HERPES
     Dosage: 500MG PER DAY
     Route: 048
     Dates: start: 19990101

REACTIONS (4)
  - DRUG INEFFECTIVE [None]
  - ILL-DEFINED DISORDER [None]
  - PAIN [None]
  - PARAESTHESIA [None]
